FAERS Safety Report 8739923 (Version 2)
Quarter: 2012Q4

REPORT INFORMATION
  Report Type: 
  Country: US (occurrence: US)
  Receive Date: 20120823
  Receipt Date: 20120906
  Transmission Date: 20130627
  Serious: No
  Sender: FDA-Public Use
  Company Number: US-009507513-1208USA001102

PATIENT

DRUGS (1)
  1. IMPLANON [Suspect]
     Indication: CONTRACEPTION
     Dosage: 1 rod
     Route: 059
     Dates: start: 20110630

REACTIONS (2)
  - Menstruation delayed [Recovered/Resolved]
  - Medical device complication [Unknown]
